FAERS Safety Report 4969990-2 (Version None)
Quarter: 2006Q1

REPORT INFORMATION
  Report Type: 
  Country: None (occurrence: None)
  Receive Date: 20060202
  Receipt Date: 20051019
  Transmission Date: 20060701
  Serious: Yes (Hospitalization)
  Sender: FDA-Public Use
  Company Number: US-2005-020122

PATIENT
  Age: 34 Year
  Sex: Female
  Weight: 117.9 kg

DRUGS (4)
  1. MIRENA [Suspect]
     Indication: CONTRACEPTION
     Dosage: 20 UG/DAY, CONT, INTRA-UTERINE
     Route: 015
     Dates: start: 20021031, end: 20050819
  2. OVCON-35 [Concomitant]
  3. ZESTRIL [Concomitant]
  4. CELEXA [Concomitant]

REACTIONS (1)
  - ECTOPIC PREGNANCY [None]
